FAERS Safety Report 5240529-X (Version None)
Quarter: 2007Q1

REPORT INFORMATION
  Report Type: 
  Country: None (occurrence: None)
  Receive Date: 20061208
  Receipt Date: 20060410
  Transmission Date: 20070707
  Serious: Yes (Other)
  Sender: FDA-Public Use
  Company Number: 2006UW06353

PATIENT
  Age: 65 Year
  Sex: Female
  Weight: 58.976 kg

DRUGS (2)
  1. CRESTOR [Suspect]
     Indication: BLOOD CHOLESTEROL INCREASED
     Dosage: 5 MG PO
     Route: 048
     Dates: start: 20060401
  2. TOPROL-XL [Concomitant]

REACTIONS (3)
  - HEADACHE [None]
  - PAIN [None]
  - PHARYNGOLARYNGEAL PAIN [None]
